FAERS Safety Report 21568930 (Version 1)
Quarter: 2022Q4

REPORT INFORMATION
  Report Type: Report from Study
  Country: US (occurrence: US)
  Receive Date: 20221108
  Receipt Date: 20221108
  Transmission Date: 20230112
  Serious: No
  Sender: FDA-Public Use
  Company Number: US-ABBVIE-4192143

PATIENT
  Sex: Male

DRUGS (1)
  1. VENCLEXTA [Suspect]
     Active Substance: VENETOCLAX
     Indication: Anaemia
     Dosage: FORM STRENGTH: 100 MG
     Route: 048

REACTIONS (2)
  - Blood calcium increased [Unknown]
  - Renal disorder [Unknown]
